FAERS Safety Report 9281216 (Version 1)
Quarter: 2013Q2

REPORT INFORMATION
  Report Type: Spontaneous
  Country: AU (occurrence: AU)
  Receive Date: 20130509
  Receipt Date: 20130509
  Transmission Date: 20140414
  Serious: Yes (Hospitalization)
  Sender: FDA-Public Use
  Company Number: AU-009507513-1305AUS002717

PATIENT
  Age: 36 Year
  Sex: Female
  Weight: 56 kg

DRUGS (3)
  1. REBETOL [Suspect]
     Dosage: 400 (DOSE UNSPECIFIED) DAILY
  2. THERAPY UNSPECIFIED [Suspect]
     Dosage: 180 DOSE UNSPECIFIED
  3. ACETAMINOPHEN [Concomitant]

REACTIONS (1)
  - Infection [Recovered/Resolved]
